FAERS Safety Report 15074979 (Version 1)
Quarter: 2018Q2

REPORT INFORMATION
  Report Type: Spontaneous
  Country: US (occurrence: US)
  Receive Date: 20180607
  Receipt Date: 20180607
  Transmission Date: 20180711
  Serious: Yes (Disabling)
  Sender: FDA-Public Use
  Company Number: None

PATIENT
  Age: 60 Year
  Sex: Female
  Weight: 59.4 kg

DRUGS (6)
  1. VITAMIN D [Concomitant]
     Active Substance: CHOLECALCIFEROL
  2. TURMERIC [Concomitant]
     Active Substance: HERBALS\TURMERIC
  3. NUEDEXTA [Suspect]
     Active Substance: DEXTROMETHORPHAN HYDROBROMIDE\QUINIDINE SULFATE
     Indication: NEURALGIA
     Dosage: ?          QUANTITY:2 DF DOSAGE FORM;?
     Route: 048
     Dates: start: 20180212, end: 20180214
  4. MULTI VITAMIN [Concomitant]
     Active Substance: VITAMINS
  5. ADDERALL [Concomitant]
     Active Substance: AMPHETAMINE ASPARTATE\AMPHETAMINE SULFATE\DEXTROAMPHETAMINE SACCHARATE\DEXTROAMPHETAMINE SULFATE
  6. XANAX [Suspect]
     Active Substance: ALPRAZOLAM

REACTIONS (10)
  - Gait inability [None]
  - Hyperhidrosis [None]
  - Migraine [None]
  - Confusional state [None]
  - Nausea [None]
  - Photophobia [None]
  - Drug ineffective [None]
  - Off label use [None]
  - Muscle spasms [None]
  - Dysstasia [None]

NARRATIVE: CASE EVENT DATE: 20180213
